FAERS Safety Report 14371501 (Version 4)
Quarter: 2021Q1

REPORT INFORMATION
  Report Type: Report from Study
  Country: FR (occurrence: FR)
  Receive Date: 20180110
  Receipt Date: 20210211
  Transmission Date: 20210419
  Serious: Yes (Hospitalization, Other)
  Sender: FDA-Public Use
  Company Number: FR-BRISTOL-MYERS SQUIBB COMPANY-BMS-2017-099170

PATIENT
  Age: 83 Year
  Sex: Male

DRUGS (1)
  1. NIVOLUMAB [Suspect]
     Active Substance: NIVOLUMAB
     Indication: SQUAMOUS CELL CARCINOMA OF LUNG
     Dosage: 168 MILLIGRAM, Q2WK
     Route: 042
     Dates: start: 20170627

REACTIONS (7)
  - Anaemia [Unknown]
  - Inflammation [Unknown]
  - Malignant neoplasm progression [Not Recovered/Not Resolved]
  - Hepatocellular injury [Unknown]
  - Oral fungal infection [Unknown]
  - Infection [Unknown]
  - Cancer pain [Recovering/Resolving]

NARRATIVE: CASE EVENT DATE: 20170801
